FAERS Safety Report 7404506-2 (Version None)
Quarter: 2011Q2

REPORT INFORMATION
  Report Type: 
  Country: None (occurrence: None)
  Receive Date: 20110408
  Receipt Date: 20110330
  Transmission Date: 20111010
  Serious: Yes (Hospitalization)
  Sender: FDA-Public Use
  Company Number: FR-PFIZER INC-FR-WYE-H17325410

PATIENT
  Age: 47 Year
  Sex: Female
  Weight: 95 kg

DRUGS (4)
  1. NERATINIB [Suspect]
     Indication: ADENOCARCINOMA OF THE CERVIX
     Dosage: 200 MG, 1X/DAY
     Route: 048
     Dates: start: 20100818, end: 20100901
  2. NERATINIB [Suspect]
     Indication: NEOPLASM
  3. TEMSIROLIMUS [Suspect]
     Indication: NEOPLASM
     Dosage: 50 MG,WEEKLY
     Route: 042
     Dates: start: 20100818, end: 20100901
  4. TEMSIROLIMUS [Suspect]
     Indication: ADENOCARCINOMA OF THE CERVIX

REACTIONS (2)
  - BLOOD CREATININE INCREASED [None]
  - PYELONEPHRITIS [None]
